FAERS Safety Report 25798228 (Version 1)
Quarter: 2025Q3

REPORT INFORMATION
  Report Type: Spontaneous
  Country: JP (occurrence: JP)
  Receive Date: 20250912
  Receipt Date: 20250912
  Transmission Date: 20251020
  Serious: Yes (Other)
  Sender: PHARMACEUTICAL ASSOC
  Company Number: JP-PAIPHARMA-2025-JP-000124

PATIENT
  Age: 45 Year
  Sex: Male

DRUGS (2)
  1. PREDNISOLONE SODIUM PHOSPHATE [Suspect]
     Active Substance: PREDNISOLONE SODIUM PHOSPHATE
     Indication: Allergic bronchopulmonary mycosis
  2. ITRACONAZOLE [Concomitant]
     Active Substance: ITRACONAZOLE
     Indication: Allergic bronchopulmonary mycosis

REACTIONS (1)
  - Central serous chorioretinopathy [Unknown]
